FAERS Safety Report 7545308-6 (Version None)
Quarter: 2011Q2

REPORT INFORMATION
  Report Type: 
  Country: None (occurrence: None)
  Receive Date: 20110613
  Receipt Date: 20110613
  Transmission Date: 20111010
  Serious: Yes (Other)
  Sender: FDA-Public Use
  Company Number: None

PATIENT
  Age: 66 Year
  Sex: Male
  Weight: 75.2971 kg

DRUGS (1)
  1. LEVEMIR [Suspect]
     Indication: BLOOD GLUCOSE ABNORMAL
     Dosage: 8 UNITS 1 SHOT DAILY
     Dates: start: 20110523, end: 20110609

REACTIONS (2)
  - PRURITUS [None]
  - RASH MACULO-PAPULAR [None]
